FAERS Safety Report 20443814 (Version 1)
Quarter: 2022Q1

REPORT INFORMATION
  Report Type: Spontaneous
  Country: US (occurrence: US)
  Receive Date: 20220208
  Receipt Date: 20220208
  Transmission Date: 20220423
  Serious: Yes (Other)
  Sender: FDA-Public Use
  Company Number: US-SA-SAC20220201001568

PATIENT
  Sex: Female

DRUGS (1)
  1. ZANTAC [Suspect]
     Active Substance: RANITIDINE HYDROCHLORIDE
     Route: 064

REACTIONS (4)
  - Hydronephrosis [Unknown]
  - Type 1 diabetes mellitus [Unknown]
  - Renal dysplasia [Unknown]
  - Maternal exposure during pregnancy [Unknown]
